FAERS Safety Report 15276056 (Version 1)
Quarter: 2018Q3

REPORT INFORMATION
  Report Type: Spontaneous
  Country: US (occurrence: US)
  Receive Date: 20180728
  Receipt Date: 20180728
  Transmission Date: 20181010
  Serious: No
  Sender: FDA-Public Use
  Company Number: None

PATIENT
  Age: 28 Year
  Sex: Female
  Weight: 67.5 kg

DRUGS (5)
  1. PROBIOTIC (NAME BRAND PEARLS) [Concomitant]
  2. CALCIUM (NAME BRAND BONE?UP) [Concomitant]
  3. CAMRESE [Concomitant]
     Active Substance: ETHINYL ESTRADIOL\LEVONORGESTREL
  4. CALMS FORTE [Concomitant]
  5. ZOLPIDEM TARTRATE 10MG; GENERIC FOR AMBIEN; TEVA 74; TEVA [Suspect]
     Active Substance: ZOLPIDEM TARTRATE
     Indication: INSOMNIA
     Dosage: ?          QUANTITY:30 TABLET(S);?
     Route: 048
     Dates: start: 20180601, end: 20180727

REACTIONS (3)
  - Drug ineffective [None]
  - Product substitution issue [None]
  - Palpitations [None]

NARRATIVE: CASE EVENT DATE: 20180711
